FAERS Safety Report 16589540 (Version 1)
Quarter: 2019Q3

REPORT INFORMATION
  Report Type: Spontaneous
  Country: FR (occurrence: FR)
  Receive Date: 20190718
  Receipt Date: 20190718
  Transmission Date: 20191004
  Serious: Yes (Hospitalization)
  Sender: FDA-Public Use
  Company Number: FR-TEVA-2019-FR-1078266

PATIENT
  Age: 58 Year
  Sex: Male
  Weight: 91 kg

DRUGS (9)
  1. QUESTRAN [Concomitant]
     Active Substance: CHOLESTYRAMINE
  2. NOVORAPID [Concomitant]
     Active Substance: INSULIN ASPART
  3. LANSOPRAZOLE. [Concomitant]
     Active Substance: LANSOPRAZOLE
  4. NOVOMIX [Concomitant]
     Active Substance: INSULIN ASPART
  5. DOXYCYCLINE. [Suspect]
     Active Substance: DOXYCYCLINE
     Indication: OSTEOMYELITIS
     Dosage: 200 MG PER DAY
     Route: 048
     Dates: start: 201811, end: 20190310
  6. KARDEGIC [Concomitant]
     Active Substance: ASPIRIN DL-LYSINE
  7. BISOPROLOL (FUMARATE ACIDE DE) [Concomitant]
     Active Substance: BISOPROLOL FUMARATE
  8. SERESTA [Concomitant]
     Active Substance: OXAZEPAM
  9. LYRICA [Concomitant]
     Active Substance: PREGABALIN

REACTIONS (1)
  - Hepatitis cholestatic [Recovered/Resolved]

NARRATIVE: CASE EVENT DATE: 20190326
